FAERS Safety Report 19256934 (Version 1)
Quarter: 2021Q2

REPORT INFORMATION
  Report Type: Spontaneous
  Country: US (occurrence: US)
  Receive Date: 20210513
  Receipt Date: 20210513
  Transmission Date: 20210717
  Serious: No
  Sender: FDA-Public Use
  Company Number: US-LUNDBECK-DKLU3031873

PATIENT
  Age: 65 Year
  Sex: Female

DRUGS (1)
  1. NORTHERA [Suspect]
     Active Substance: DROXIDOPA
     Indication: CHRONIC KIDNEY DISEASE
     Route: 048
     Dates: start: 20210226

REACTIONS (3)
  - Product use in unapproved indication [Unknown]
  - Heart rate increased [Unknown]
  - Palpitations [Unknown]
